FAERS Safety Report 5150849-5 (Version None)
Quarter: 2006Q4

REPORT INFORMATION
  Report Type: 
  Country: None (occurrence: None)
  Receive Date: 20061114
  Receipt Date: 20061004
  Transmission Date: 20070319
  Serious: Yes (Hospitalization, Other)
  Sender: FDA-Public Use
  Company Number: IT-ELI_LILLY_AND_COMPANY-IT200610001703

PATIENT
  Age: 63 Year
  Sex: Female

DRUGS (5)
  1. ALIMTA [Suspect]
     Indication: NON-SMALL CELL LUNG CANCER
     Dosage: 500 MG/M2, OTHER
     Route: 042
     Dates: start: 20060228, end: 20060817
  2. EUTIROX [Concomitant]
  3. DOBETIN [Concomitant]
  4. CORTISONE ACETATE [Concomitant]
  5. FOLIC ACID [Concomitant]

REACTIONS (2)
  - ASCITES [None]
  - RENAL FAILURE [None]
